FAERS Safety Report 6575869-5 (Version None)
Quarter: 2010Q1

REPORT INFORMATION
  Report Type: 
  Country: None (occurrence: None)
  Receive Date: 20100209
  Receipt Date: 20100204
  Transmission Date: 20100710
  Serious: Yes (Hospitalization)
  Sender: FDA-Public Use
  Company Number: AU-JNJFOC-20051106047

PATIENT
  Age: 6 Week
  Sex: Male

DRUGS (4)
  1. TYLENOL-500 [Suspect]
  2. TYLENOL-500 [Suspect]
     Indication: IRRITABILITY
  3. TEMPRA [Suspect]
     Indication: PYREXIA
  4. INFANT'S FORMULA [Concomitant]

REACTIONS (4)
  - DRUG ADMINISTRATION ERROR [None]
  - HEPATOTOXICITY [None]
  - OVERDOSE [None]
  - POISONING DELIBERATE [None]
